FAERS Safety Report 4489450-5 (Version None)
Quarter: 2004Q4

REPORT INFORMATION
  Report Type: 
  Country: None (occurrence: None)
  Receive Date: 20041028
  Receipt Date: 20041021
  Transmission Date: 20050328
  Serious: Yes (Hospitalization, Other)
  Sender: FDA-Public Use
  Company Number: GBWYE090305OCT04

PATIENT
  Age: 55 Year
  Sex: Female

DRUGS (3)
  1. EFFEXOR [Suspect]
     Indication: DEPRESSION
     Dosage: 37.5MG ORAL
     Route: 048
     Dates: start: 20040803, end: 20040803
  2. ACETAMINOPHEN [Concomitant]
  3. THYROXINE SODIUM       (LEVOTHYROXINE SODIUM) [Concomitant]

REACTIONS (5)
  - DIZZINESS [None]
  - FEELING ABNORMAL [None]
  - NAUSEA [None]
  - PALLOR [None]
  - SYNCOPE [None]
